FAERS Safety Report 5470907-5 (Version None)
Quarter: 2007Q3

REPORT INFORMATION
  Report Type: 
  Country: None (occurrence: None)
  Receive Date: 20070925
  Receipt Date: 20070919
  Transmission Date: 20080115
  Serious: Yes (Other)
  Sender: FDA-Public Use
  Company Number: CHPA2007CA09825

PATIENT
  Age: 7 Month
  Sex: Female

DRUGS (1)
  1. OTRIVIN [Suspect]
     Dosage: NASAL
     Route: 045

REACTIONS (2)
  - INCORRECT DOSE ADMINISTERED [None]
  - SOMNOLENCE [None]
